FAERS Safety Report 4694014-4 (Version None)
Quarter: 2005Q2

REPORT INFORMATION
  Report Type: 
  Country: None (occurrence: None)
  Receive Date: 20050616
  Receipt Date: 20050601
  Transmission Date: 20051028
  Serious: Yes (Other)
  Sender: FDA-Public Use
  Company Number: US014950

PATIENT
  Age: 54 Year
  Sex: Female

DRUGS (5)
  1. ACTIQ [Suspect]
     Dosage: 800 UG ONCE BUCCAL
     Route: 002
     Dates: start: 20031020
  2. DILANTIN [Suspect]
     Dates: start: 20031020
  3. PROZAC [Suspect]
     Dates: start: 20051020
  4. DEPAKOTE [Suspect]
     Dates: start: 20031020
  5. VIOXX [Suspect]
     Dates: start: 20031020

REACTIONS (4)
  - INTENTIONAL MISUSE [None]
  - LETHARGY [None]
  - SOMNOLENCE [None]
  - SUICIDE ATTEMPT [None]
